FAERS Safety Report 7346865-5 (Version None)
Quarter: 2011Q1

REPORT INFORMATION
  Report Type: 
  Country: None (occurrence: None)
  Receive Date: 20110311
  Receipt Date: 20110301
  Transmission Date: 20110831
  Serious: Yes (Hospitalization, Other)
  Sender: FDA-Public Use
  Company Number: CA-JNJFOC-20110301630

PATIENT
  Sex: Female
  Weight: 69 kg

DRUGS (3)
  1. REMICADE [Suspect]
     Indication: CROHN'S DISEASE
     Route: 042
  2. IMURAN [Concomitant]
  3. REMICADE [Suspect]
     Route: 042

REACTIONS (6)
  - RASH [None]
  - NAUSEA [None]
  - CHILLS [None]
  - VOMITING [None]
  - MALAISE [None]
  - PYREXIA [None]
